FAERS Safety Report 6771103-1 (Version None)
Quarter: 2010Q2

REPORT INFORMATION
  Report Type: 
  Country: None (occurrence: None)
  Receive Date: 20100616
  Receipt Date: 20100602
  Transmission Date: 20101027
  Serious: Yes (Other)
  Sender: FDA-Public Use
  Company Number: AU-RANBAXY-2010RR-34452

PATIENT
  Age: 21 Year
  Sex: Female

DRUGS (7)
  1. TRAMADOL HCL [Suspect]
     Dosage: 3 G, UNK
     Route: 048
  2. QUETIAPINE [Suspect]
     Dosage: 15 G, UNK
     Route: 048
  3. ESCITALOPRAM [Suspect]
     Dosage: 560 MG, UNK
     Route: 048
  4. MIRTAZAPINE [Suspect]
     Dosage: 315 MG, UNK
     Route: 048
  5. FLUOXETINE HCL [Suspect]
     Dosage: 1.1 G, UNK
     Route: 048
  6. RISPERIDONE [Suspect]
     Dosage: 120 MG, UNK
     Route: 048
  7. LITHIUM [Suspect]
     Dosage: 13 G, UNK
     Route: 048

REACTIONS (2)
  - OVERDOSE [None]
  - SEROTONIN SYNDROME [None]
